FAERS Safety Report 5401271-5 (Version None)
Quarter: 2007Q3

REPORT INFORMATION
  Report Type: 
  Country: None (occurrence: None)
  Receive Date: 20070731
  Receipt Date: 20070702
  Transmission Date: 20080115
  Serious: Yes (Other)
  Sender: FDA-Public Use
  Company Number: US-JNJFOC-20061103264

PATIENT
  Sex: Female
  Weight: 65.77 kg

DRUGS (7)
  1. FENTANYL [Suspect]
     Indication: PAIN
     Dosage: 100+25
     Route: 062
  2. FENTANYL [Suspect]
     Indication: BACK PAIN
     Route: 062
  3. DURAGESIC-100 [Suspect]
     Dosage: 25UG/HR PLUS 100UG/HR PATCHES
     Route: 062
  4. DURAGESIC-100 [Suspect]
     Indication: PAIN
     Route: 062
  5. DURAGESIC-100 [Suspect]
     Indication: BACK PAIN
     Route: 062
  6. FLEXERIL [Suspect]
     Indication: MUSCLE RELAXANT THERAPY
     Route: 048
  7. PERCOCET [Concomitant]
     Indication: PAIN
     Dosage: 10/325 MG, ONE TABLET EVERY 4-6 HOURS
     Route: 048

REACTIONS (6)
  - RASH GENERALISED [None]
  - ROAD TRAFFIC ACCIDENT [None]
  - SARCOIDOSIS [None]
  - SOMNOLENCE [None]
  - STRESS [None]
  - THINKING ABNORMAL [None]
